FAERS Safety Report 5245401-7 (Version None)
Quarter: 2007Q1

REPORT INFORMATION
  Report Type: 
  Country: None (occurrence: None)
  Receive Date: 20070223
  Receipt Date: 20070216
  Transmission Date: 20070707
  Serious: Yes (Hospitalization)
  Sender: FDA-Public Use
  Company Number: US-JNJFOC-20070204986

PATIENT
  Sex: Male
  Weight: 116 kg

DRUGS (10)
  1. NESIRITIDE [Suspect]
     Indication: VENTRICULAR DYSFUNCTION
     Route: 058
  2. LANOXIN [Concomitant]
     Route: 048
  3. RYTHMOL [Concomitant]
     Route: 048
  4. LISINOPRIL [Concomitant]
     Route: 048
  5. LIPITOR [Concomitant]
     Route: 048
  6. ASPIRIN [Concomitant]
     Route: 048
  7. MVT [Concomitant]
     Route: 048
  8. ASCORBIC ACID [Concomitant]
     Route: 048
  9. SLOW NIACIN [Concomitant]
     Route: 048
  10. FISH OIL [Concomitant]
     Route: 048

REACTIONS (2)
  - BLOOD GLUCOSE INCREASED [None]
  - PANIC ATTACK [None]
